FAERS Safety Report 5667383-6 (Version None)
Quarter: 2008Q1

REPORT INFORMATION
  Report Type: 
  Country: None (occurrence: None)
  Receive Date: 20080315
  Receipt Date: 20080118
  Transmission Date: 20080703
  Serious: No
  Sender: FDA-Public Use
  Company Number: US-ABBOTT-08P-163-0434422-00

PATIENT
  Sex: Female
  Weight: 99.88 kg

DRUGS (10)
  1. HUMIRA [Suspect]
     Indication: RHEUMATOID ARTHRITIS
     Route: 058
     Dates: start: 20060101
  2. HUMIRA [Suspect]
  3. HUMIRA [Suspect]
  4. HUMIRA [Suspect]
     Indication: RHEUMATOID ARTHRITIS
     Route: 058
     Dates: start: 20070101
  5. HUMIRA [Suspect]
  6. DIABETES MEDICINE [Concomitant]
     Indication: DIABETES MELLITUS
     Route: 048
  7. HYPERTENSION MEDICINE [Concomitant]
     Indication: HYPERTENSION
     Route: 048
  8. THYROID MEDICINE [Concomitant]
     Indication: THYROID DISORDER
     Route: 048
  9. MEDICINE FOR TOES AND FEET [Concomitant]
     Indication: DRUG USE FOR UNKNOWN INDICATION
     Route: 048
     Dates: start: 20070601
  10. MEDICINE FOR TOES AND FEET [Concomitant]

REACTIONS (5)
  - ACCIDENTAL EXPOSURE [None]
  - DRUG INEFFECTIVE [None]
  - HYPOAESTHESIA [None]
  - INJECTION SITE PAIN [None]
  - RESTLESS LEGS SYNDROME [None]
